FAERS Safety Report 20867750 (Version 3)
Quarter: 2022Q2

REPORT INFORMATION
  Report Type: Spontaneous
  Country: GR (occurrence: GR)
  Receive Date: 20220524
  Receipt Date: 20220607
  Transmission Date: 20220721
  Serious: Yes (Hospitalization, Other)
  Sender: FDA-Public Use
  Company Number: GR-GILEAD-2022-0582337

PATIENT
  Age: 45 Year
  Sex: Male

DRUGS (6)
  1. YESCARTA [Suspect]
     Active Substance: AXICABTAGENE CILOLEUCEL
     Indication: Diffuse large B-cell lymphoma
     Dosage: UNK
     Route: 042
     Dates: start: 20220406, end: 20220406
  2. FLUDARABINE [Concomitant]
     Active Substance: FLUDARABINE PHOSPHATE
     Dosage: 30 MG/M2, QD DAYS -5, -4, -3
     Dates: start: 20220401, end: 20220403
  3. CYCLOPHOSPHAMIDE [Concomitant]
     Active Substance: CYCLOPHOSPHAMIDE
     Dosage: 500 MG/M2, QD DAYS -5, -4, -3
     Dates: start: 20220401, end: 20220403
  4. R ESHAP [Concomitant]
  5. BENDAMUSTINE;RITUXIMAB [Concomitant]
     Indication: Renal impairment
  6. BENDAMUSTINE;RITUXIMAB [Concomitant]
     Indication: Diffuse large B-cell lymphoma

REACTIONS (6)
  - Pyelocaliectasis [Recovered/Resolved]
  - Cytokine release syndrome [Recovered/Resolved]
  - Hypoxia [Recovered/Resolved]
  - Neutropenia [Recovering/Resolving]
  - Leukopenia [Unknown]
  - Headache [Recovered/Resolved]

NARRATIVE: CASE EVENT DATE: 20220401
